FAERS Safety Report 10250768 (Version 1)
Quarter: 2014Q2

REPORT INFORMATION
  Report Type: Spontaneous
  Country: US (occurrence: US)
  Receive Date: 20140620
  Receipt Date: 20140620
  Transmission Date: 20141212
  Serious: No
  Sender: FDA-Public Use
  Company Number: US-TEVA-489542USA

PATIENT
  Age: 26 Year
  Sex: Female

DRUGS (1)
  1. NUVIGIL [Suspect]
     Indication: POOR QUALITY SLEEP

REACTIONS (1)
  - Drug ineffective for unapproved indication [Unknown]
